FAERS Safety Report 25387435 (Version 1)
Quarter: 2025Q2

REPORT INFORMATION
  Report Type: Report from Study
  Country: CA (occurrence: CA)
  Receive Date: 20250602
  Receipt Date: 20250602
  Transmission Date: 20250716
  Serious: Yes (Other)
  Sender: JOHNSON AND JOHNSON
  Company Number: CA-JNJFOC-20250537566

PATIENT
  Age: 40 Year
  Sex: Female

DRUGS (1)
  1. SIMPONI [Suspect]
     Active Substance: GOLIMUMAB
     Indication: Rheumatoid arthritis
     Dosage: FORM STRENGTH: 50MG
     Route: 058

REACTIONS (4)
  - Rheumatoid arthritis [Unknown]
  - Helicobacter infection [Unknown]
  - Drug ineffective [Unknown]
  - Intentional product use issue [Unknown]
